FAERS Safety Report 13892584 (Version 3)
Quarter: 2017Q3

REPORT INFORMATION
  Report Type: Spontaneous
  Country: US (occurrence: US)
  Receive Date: 20170822
  Receipt Date: 20170908
  Transmission Date: 20171127
  Serious: No
  Sender: FDA-Public Use
  Company Number: US-PFIZER INC-2017340848

PATIENT
  Age: 75 Year
  Sex: Female
  Weight: 93.44 kg

DRUGS (1)
  1. IBRANCE [Suspect]
     Active Substance: PALBOCICLIB
     Indication: BREAST CANCER METASTATIC
     Dosage: 100 MG, CYCLIC (ONCE A DAY FOR 7 DAYS, THEN OFF FOR 7 DAYS THEN REPEAT)
     Route: 048
     Dates: start: 20150805, end: 20170816

REACTIONS (4)
  - Full blood count increased [Unknown]
  - Atelectasis [Unknown]
  - Neoplasm progression [Not Recovered/Not Resolved]
  - Carbohydrate antigen 27.29 increased [Not Recovered/Not Resolved]

NARRATIVE: CASE EVENT DATE: 20170807
